FAERS Safety Report 13517471 (Version 2)
Quarter: 2017Q3

REPORT INFORMATION
  Report Type: Spontaneous
  Country: US (occurrence: US)
  Receive Date: 20170505
  Receipt Date: 20170709
  Transmission Date: 20171127
  Serious: Yes (Other)
  Sender: FDA-Public Use
  Company Number: US-NOVOPROD-542737

PATIENT
  Age: 51 Year
  Sex: Male
  Weight: 116.5 kg

DRUGS (1)
  1. TRESIBA FLEXTOUCH U200 [Suspect]
     Active Substance: INSULIN DEGLUDEC
     Indication: TYPE 2 DIABETES MELLITUS
     Dosage: 90 U, QD
     Route: 058
     Dates: start: 20161114, end: 20170314

REACTIONS (2)
  - Mood altered [Unknown]
  - Aggression [Unknown]

NARRATIVE: CASE EVENT DATE: 20170314
